FAERS Safety Report 11827521 (Version 1)
Quarter: 2015Q4

REPORT INFORMATION
  Report Type: Spontaneous
  Country: US (occurrence: US)
  Receive Date: 20151211
  Receipt Date: 20151211
  Transmission Date: 20160305
  Serious: Yes (Death, Other)
  Sender: FDA-Public Use
  Company Number: US-ENDO PHARMACEUTICALS INC.-2015-004807

PATIENT
  Age: 48 Year
  Sex: Female

DRUGS (1)
  1. PREDNISONE TABLETS [Suspect]
     Active Substance: PREDNISONE
     Indication: ASTHMA
     Route: 065

REACTIONS (4)
  - Diabetes mellitus [Unknown]
  - Death [Fatal]
  - Weight increased [Unknown]
  - Renal disorder [Unknown]
